FAERS Safety Report 5836870-X (Version None)
Quarter: 2008Q3

REPORT INFORMATION
  Report Type: 
  Country: None (occurrence: None)
  Receive Date: 20080806
  Receipt Date: 20080806
  Transmission Date: 20090109
  Serious: Yes (Other)
  Sender: FDA-Public Use
  Company Number: None

PATIENT
  Sex: Female
  Weight: 82.1011 kg

DRUGS (2)
  1. CYMBALTA [Suspect]
     Indication: MIGRAINE PROPHYLAXIS
     Dosage: 1 TABLET TAKEN ONCE PO
     Route: 048
     Dates: start: 20080801, end: 20080801
  2. AXERT [Suspect]
     Indication: MIGRAINE
     Dosage: 1 TABLET 4-6 X MONTH PO
     Route: 048
     Dates: start: 20020301, end: 20080803

REACTIONS (6)
  - COORDINATION ABNORMAL [None]
  - DRUG INTERACTION [None]
  - HYPERHIDROSIS [None]
  - TACHYCARDIA [None]
  - TREMOR [None]
  - VOMITING [None]
